FAERS Safety Report 7520229-3 (Version None)
Quarter: 2011Q2

REPORT INFORMATION
  Report Type: 
  Country: None (occurrence: None)
  Receive Date: 20110602
  Receipt Date: 20110523
  Transmission Date: 20111010
  Serious: Yes (Hospitalization)
  Sender: FDA-Public Use
  Company Number: US-BAXTER-2011BH015675

PATIENT
  Age: 61 Year
  Sex: Male

DRUGS (2)
  1. CHEMOTHERAPY [Suspect]
     Indication: PRODUCT USED FOR UNKNOWN INDICATION
     Route: 065
  2. DIANEAL [Suspect]
     Indication: PERITONEAL DIALYSIS
     Route: 033

REACTIONS (9)
  - ASTHENIA [None]
  - CONCUSSION [None]
  - FALL [None]
  - LACERATION [None]
  - JOINT INJURY [None]
  - ROTATOR CUFF SYNDROME [None]
  - LOSS OF CONSCIOUSNESS [None]
  - HEAD INJURY [None]
  - HYPOTENSION [None]
